FAERS Safety Report 26009828 (Version 1)
Quarter: 2025Q4

REPORT INFORMATION
  Report Type: Spontaneous
  Country: EU (occurrence: EU)
  Receive Date: 20251107
  Receipt Date: 20251107
  Transmission Date: 20260118
  Serious: Yes (Death, Hospitalization, Other)
  Sender: BAXTER
  Company Number: None

PATIENT
  Age: 63 Year
  Sex: Female
  Weight: 60 kg

DRUGS (20)
  1. CYCLOPHOSPHAMIDE [Suspect]
     Active Substance: CYCLOPHOSPHAMIDE
     Indication: Breast cancer stage III
     Dosage: 600 MG/M2 EITHER  940 MG
     Route: 065
     Dates: start: 20160321
  2. DEXTROSE [Suspect]
     Active Substance: DEXTROSE MONOHYDRATE
     Indication: Premedication
     Route: 042
  3. DOCETAXEL [Suspect]
     Active Substance: DOCETAXEL
     Indication: Breast cancer stage III
     Dosage: 75 MG/M2 EITHER 120 MG
     Route: 042
     Dates: start: 20160321, end: 20160321
  4. TAXOTERE [Suspect]
     Active Substance: DOCETAXEL
     Indication: Breast cancer
     Dosage: 1 TOTAL
     Route: 042
     Dates: start: 20160321, end: 20160321
  5. SITAGLIPTIN [Concomitant]
     Active Substance: SITAGLIPTIN
     Indication: Diabetes mellitus
     Dosage: 2 DOSAGE FORM, QD
     Route: 048
  6. METOCLOPRAMIDE [Concomitant]
     Active Substance: METOCLOPRAMIDE
     Indication: Premedication
     Dosage: 10 MG BEFORE MEAL IF NAUSEA, 1 AS NECESSARY
     Route: 048
  7. METFORMIN [Concomitant]
     Active Substance: METFORMIN HYDROCHLORIDE
     Indication: Diabetes mellitus
     Dosage: 2000 MG, QD
     Route: 048
  8. LEVOTHYROXINE [Concomitant]
     Active Substance: LEVOTHYROXINE
     Indication: Hypothyroidism
     Dosage: 75 UG, QD
     Route: 048
  9. METHYLPREDNISOLONE [Concomitant]
     Active Substance: METHYLPREDNISOLONE
     Indication: Premedication
     Dosage: 120MG IN 20ML OF SODIUM CHLORIDE 0.9%
     Route: 042
     Dates: start: 20160321, end: 20160321
  10. GRANISETRON [Concomitant]
     Active Substance: GRANISETRON
     Indication: Premedication
     Dosage: 1 DF IN THE MORNING AND 1 DF IN THE EVENING ON THE DAY OF DOCETAXEL
     Route: 048
     Dates: start: 20160321, end: 20160321
  11. ONDANSETRON [Concomitant]
     Active Substance: ONDANSETRON
     Indication: Premedication
     Dosage: 1 DOSAGE FORM, QD
     Route: 048
     Dates: start: 20160321, end: 20160321
  12. PREDNISONE [Concomitant]
     Active Substance: PREDNISONE
     Indication: Premedication
     Dosage: 60 MG , QD
     Route: 048
     Dates: start: 20160321, end: 20160321
  13. METHOTREXATE [Concomitant]
     Active Substance: METHOTREXATE
     Dosage: 10 MG, QD
     Route: 042
  14. FOLIC ACID [Concomitant]
     Active Substance: FOLIC ACID
     Dosage: 25 MG, ONCE A WEEK
     Route: 048
  15. MONTELUKAST [Concomitant]
     Active Substance: MONTELUKAST
     Dosage: 10 MG, QD
     Route: 048
  16. ALBUTEROL [Concomitant]
     Active Substance: ALBUTEROL
     Indication: Asthma
     Dosage: DOSE:2 PUFF(S), 1 AS NECESSARY
     Route: 048
  17. OMEPRAZOLE [Concomitant]
     Active Substance: OMEPRAZOLE
     Dosage: 20 MG, QD
     Route: 048
  18. IRBESARTAN [Concomitant]
     Active Substance: IRBESARTAN
     Dosage: 300 MG, QD
     Route: 048
  19. ATORVASTATIN [Concomitant]
     Active Substance: ATORVASTATIN
     Dosage: 1 DOSAGE FORM, QD
     Route: 048
  20. ACETAMINOPHEN [Concomitant]
     Active Substance: ACETAMINOPHEN
     Dosage: 1 G, 1 AS NECESSARY, 4 TIMES DAILY IF NEEDED
     Route: 048

REACTIONS (13)
  - Congenital aplasia [Fatal]
  - Large intestine infection [Fatal]
  - Intestinal perforation [Fatal]
  - Intestinal obstruction [Fatal]
  - Haematemesis [Fatal]
  - Large intestine infection [Fatal]
  - Cardio-respiratory arrest [Fatal]
  - Abdominal pain [Fatal]
  - Agranulocytosis [Fatal]
  - Acute kidney injury [Fatal]
  - Septic shock [Fatal]
  - Gastrointestinal haemorrhage [Fatal]
  - Diarrhoea [Fatal]

NARRATIVE: CASE EVENT DATE: 20160401
